FAERS Safety Report 7678813-2 (Version None)
Quarter: 2011Q3

REPORT INFORMATION
  Report Type: 
  Country: None (occurrence: None)
  Receive Date: 20110811
  Receipt Date: 20110802
  Transmission Date: 20111222
  Serious: Yes (Hospitalization, Other)
  Sender: FDA-Public Use
  Company Number: US-ASTRAZENECA-2010SE60639

PATIENT
  Age: 27 Year
  Sex: Female

DRUGS (1)
  1. SEROQUEL XR [Suspect]
     Route: 048

REACTIONS (5)
  - PAIN [None]
  - TREMOR [None]
  - DRUG DOSE OMISSION [None]
  - COLD SWEAT [None]
  - CONVULSION [None]
